FAERS Safety Report 7308029-0 (Version None)
Quarter: 2011Q1

REPORT INFORMATION
  Report Type: 
  Country: None (occurrence: None)
  Receive Date: 20110209
  Receipt Date: 20110131
  Transmission Date: 20110831
  Serious: Yes (Other)
  Sender: FDA-Public Use
  Company Number: 026552

PATIENT
  Age: 52 Year
  Sex: Female
  Weight: 74 kg

DRUGS (8)
  1. LACOSAMIDE [Suspect]
     Indication: EPILEPSY
     Dosage: (400 MG ORAL)
     Route: 048
     Dates: start: 20100110
  2. ALBUTEROL [Concomitant]
  3. LAMICTAL [Concomitant]
  4. PAXIL [Concomitant]
  5. ADVAIR [Concomitant]
  6. SINGULAIR [Concomitant]
  7. TOPIRAMATE [Concomitant]
  8. METHOTREXATE [Concomitant]

REACTIONS (1)
  - STEVENS-JOHNSON SYNDROME [None]
